FAERS Safety Report 18763377 (Version 3)
Quarter: 2021Q1

REPORT INFORMATION
  Report Type: Spontaneous
  Country: IL (occurrence: IL)
  Receive Date: 20210120
  Receipt Date: 20210318
  Transmission Date: 20210419
  Serious: Yes (Hospitalization, Other)
  Sender: FDA-Public Use
  Company Number: IL-GLAXOSMITHKLINE-IL2021EME011080

PATIENT
  Age: 83 Year
  Sex: Male

DRUGS (1)
  1. NUCALA [Suspect]
     Active Substance: MEPOLIZUMAB
     Indication: EOSINOPHILIC GRANULOMATOSIS WITH POLYANGIITIS
     Dosage: 300 MG

REACTIONS (6)
  - Respiratory disorder [Unknown]
  - Neoplasm malignant [Unknown]
  - Drug ineffective [Unknown]
  - Condition aggravated [Unknown]
  - Lung abscess [Unknown]
  - Cough [Unknown]
